FAERS Safety Report 7150410-7 (Version None)
Quarter: 2010Q4

REPORT INFORMATION
  Report Type: 
  Country: None (occurrence: None)
  Receive Date: 20101210
  Receipt Date: 20101129
  Transmission Date: 20110411
  Serious: Yes (Other)
  Sender: FDA-Public Use
  Company Number: PHHY2010ES80887

PATIENT
  Age: 66 Year
  Sex: Female

DRUGS (3)
  1. PAMIDRONATE DISODIUM [Suspect]
     Indication: BREAST CANCER
     Dosage: UNK
  2. ZOLEDRONATE [Suspect]
     Indication: BREAST CANCER
     Dosage: UNK
     Dates: start: 20030101, end: 20060101
  3. LETROZOLE [Concomitant]
     Indication: BREAST CANCER
     Dosage: UNK

REACTIONS (5)
  - ABSCESS JAW [None]
  - DEBRIDEMENT [None]
  - OSTEOMYELITIS CHRONIC [None]
  - OSTEONECROSIS OF JAW [None]
  - TOOTH LOSS [None]
